FAERS Safety Report 21325688 (Version 1)
Quarter: 2022Q3

REPORT INFORMATION
  Report Type: Spontaneous
  Country: CA (occurrence: CA)
  Receive Date: 20220912
  Receipt Date: 20220912
  Transmission Date: 20221026
  Serious: Yes (Other)
  Sender: FDA-Public Use
  Company Number: CA-JNJFOC-20220920992

PATIENT
  Age: 75 Year
  Sex: Female
  Weight: 38 kg

DRUGS (2)
  1. REMICADE [Suspect]
     Active Substance: INFLIXIMAB
     Indication: Crohn^s disease
     Route: 041
  2. ASACOL [Concomitant]
     Active Substance: MESALAMINE

REACTIONS (6)
  - Dementia [Recovered/Resolved]
  - Nasopharyngitis [Recovered/Resolved]
  - Increased appetite [Recovered/Resolved]
  - Weight increased [Recovered/Resolved]
  - Abdominal pain [Recovered/Resolved]
  - Nausea [Recovered/Resolved]
